FAERS Safety Report 12583212 (Version 3)
Quarter: 2019Q2

REPORT INFORMATION
  Report Type: Spontaneous
  Country: JP (occurrence: JP)
  Receive Date: 20160722
  Receipt Date: 20190523
  Transmission Date: 20190711
  Serious: Yes (Hospitalization, Other)
  Sender: FDA-Public Use
  Company Number: JP-SA-2016SA067381

PATIENT
  Sex: Male

DRUGS (1)
  1. RENAGEL [Suspect]
     Active Substance: SEVELAMER HYDROCHLORIDE
     Indication: HYPERPHOSPHATAEMIA
     Dosage: 1.2 G (400 MG?3),QD
     Route: 048

REACTIONS (5)
  - Crystal deposit intestine [Recovering/Resolving]
  - Abscess [Unknown]
  - Diverticulitis [Recovering/Resolving]
  - Large intestine perforation [Recovering/Resolving]
  - Abdominal pain lower [Unknown]
